FAERS Safety Report 5356593-3 (Version None)
Quarter: 2007Q2

REPORT INFORMATION
  Report Type: 
  Country: None (occurrence: None)
  Receive Date: 20070614
  Receipt Date: 20070601
  Transmission Date: 20071010
  Serious: Yes (Other)
  Sender: FDA-Public Use
  Company Number: PHBS2007FI09483

PATIENT
  Age: 80 Year
  Sex: Female

DRUGS (3)
  1. LESCOL [Suspect]
     Indication: HYPERCHOLESTEROLAEMIA
     Dosage: 40 MG/D
     Route: 048
     Dates: start: 20070123, end: 20070402
  2. ZANIDIP [Concomitant]
     Dosage: 10 MG/D
     Dates: start: 20070109, end: 20070402
  3. TEVETEN HCT [Concomitant]
     Dosage: 1 DF, QD
     Route: 048
     Dates: start: 20061031, end: 20070402

REACTIONS (7)
  - BLISTER [None]
  - ERYTHEMA MULTIFORME [None]
  - PRURITUS [None]
  - RASH ERYTHEMATOUS [None]
  - RASH MACULAR [None]
  - RASH PAPULAR [None]
  - SKIN EXFOLIATION [None]
